FAERS Safety Report 7922606-5 (Version None)
Quarter: 2011Q4

REPORT INFORMATION
  Report Type: 
  Country: None (occurrence: None)
  Receive Date: 20111117
  Receipt Date: 20101220
  Transmission Date: 20120403
  Serious: No
  Sender: FDA-Public Use
  Company Number: US-ALLERGAN-1016539US

PATIENT
  Age: 82 Year
  Sex: Female

DRUGS (3)
  1. COMBIGAN [Suspect]
     Indication: GLAUCOMA
     Dosage: 1 GTT, BID
     Route: 047
     Dates: start: 20101201, end: 20101219
  2. UNSPECIFIED BLOOD PRESSURE MEDICATIONS [Concomitant]
     Dosage: UNK
  3. UNSPECIFIED BLOOD THINNERS [Concomitant]
     Indication: PRODUCT USED FOR UNKNOWN INDICATION
     Dosage: UNK

REACTIONS (5)
  - EYELID PTOSIS [None]
  - BLOOD PRESSURE DECREASED [None]
  - MALAISE [None]
  - ASTHENIA [None]
  - FATIGUE [None]
